FAERS Safety Report 20382220 (Version 1)
Quarter: 2022Q1

REPORT INFORMATION
  Report Type: Spontaneous
  Country: US (occurrence: None)
  Receive Date: 20220127
  Receipt Date: 20220127
  Transmission Date: 20220424
  Serious: Yes (Hospitalization)
  Sender: FDA-Public Use
  Company Number: None

PATIENT
  Age: 30 Year
  Sex: Male
  Weight: 110.3 kg

DRUGS (8)
  1. CYTARABINE [Suspect]
     Active Substance: CYTARABINE
     Dates: end: 20220101
  2. THIOGUANINE ANHYDROUS [Suspect]
     Active Substance: THIOGUANINE ANHYDROUS
     Dates: end: 20211220
  3. CYCLOPHOSPHAMIDE [Suspect]
     Active Substance: CYCLOPHOSPHAMIDE
     Dates: end: 20211220
  4. VINCRISTINE SULFATE [Suspect]
     Active Substance: VINCRISTINE SULFATE
     Dates: end: 20220112
  5. DEXAMETHASONE [Suspect]
     Active Substance: DEXAMETHASONE
     Dates: end: 20211220
  6. DOXORUBICIN HYDROCHLORIDE [Suspect]
     Active Substance: DOXORUBICIN HYDROCHLORIDE
     Dates: end: 20211108
  7. METHOTREXATE [Suspect]
     Active Substance: METHOTREXATE
     Dates: end: 20211230
  8. METHOTREXATE [Suspect]
     Active Substance: METHOTREXATE

REACTIONS (15)
  - Asthenia [None]
  - Chills [None]
  - Frequent bowel movements [None]
  - Gingival bleeding [None]
  - Cough [None]
  - Pyrexia [None]
  - Tachycardia [None]
  - Hypotension [None]
  - Septic shock [None]
  - Febrile neutropenia [None]
  - Hyperglycaemia [None]
  - Diarrhoea [None]
  - Haemorrhoids [None]
  - Bone marrow failure [None]
  - Aplastic anaemia [None]

NARRATIVE: CASE EVENT DATE: 20220115
